FAERS Safety Report 5690727-6 (Version None)
Quarter: 2008Q2

REPORT INFORMATION
  Report Type: 
  Country: None (occurrence: None)
  Receive Date: 20080401
  Receipt Date: 20080321
  Transmission Date: 20081010
  Serious: Yes (Hospitalization)
  Sender: FDA-Public Use
  Company Number: US-ELI_LILLY_AND_COMPANY-US200802002865

PATIENT
  Sex: Female

DRUGS (4)
  1. CYMBALTA [Suspect]
     Dosage: 60 MG, UNK
  2. CYMBALTA [Suspect]
     Dosage: 30 MG, DAILY (1/D)
  3. CYMBALTA [Suspect]
     Dosage: 30 MG, QOD
     Dates: end: 20080201
  4. XANAX [Concomitant]
     Dosage: 1 MG, UNK
     Dates: start: 20080214

REACTIONS (7)
  - AFFECT LABILITY [None]
  - DIZZINESS [None]
  - DRUG WITHDRAWAL SYNDROME [None]
  - HOSPITALISATION [None]
  - PARAESTHESIA [None]
  - SUICIDE ATTEMPT [None]
  - VERTIGO [None]
